FAERS Safety Report 9956003 (Version 1)
Quarter: 2014Q1

REPORT INFORMATION
  Report Type: Report from Study
  Country: US (occurrence: US)
  Receive Date: 20140304
  Receipt Date: 20140304
  Transmission Date: 20141002
  Serious: No
  Sender: FDA-Public Use
  Company Number: US-ABBVIE-13P-163-1087126-00

PATIENT
  Sex: Female

DRUGS (4)
  1. HUMIRA [Suspect]
     Indication: PSORIASIS
     Route: 058
  2. HUMIRA [Suspect]
     Indication: PSORIATIC ARTHROPATHY
  3. HUMIRA [Suspect]
     Indication: GASTROINTESTINAL DISORDER
  4. METHOTREXATE [Concomitant]
     Indication: PRODUCT USED FOR UNKNOWN INDICATION

REACTIONS (4)
  - Drug dose omission [Unknown]
  - Infection [Unknown]
  - Psoriasis [Unknown]
  - Alopecia [Unknown]
